FAERS Safety Report 7796999-6 (Version None)
Quarter: 2011Q4

REPORT INFORMATION
  Report Type: 
  Country: None (occurrence: None)
  Receive Date: 20111005
  Receipt Date: 20111005
  Transmission Date: 20120403
  Serious: Yes (Hospitalization)
  Sender: FDA-Public Use
  Company Number: None

PATIENT
  Age: 79 Year
  Sex: Male
  Weight: 70.76 kg

DRUGS (3)
  1. FENTANYL-100 [Concomitant]
     Route: 062
  2. MORPHINE [Concomitant]
     Route: 048
  3. CITALOPRAM HYDROBROMIDE [Suspect]
     Indication: PAIN
     Dosage: 40 MG DAILY -UNTIL STOPPING-
     Route: 048

REACTIONS (5)
  - BACK PAIN [None]
  - PSYCHOMOTOR HYPERACTIVITY [None]
  - PANIC ATTACK [None]
  - OSTEOMYELITIS [None]
  - COSTOCHONDRITIS [None]
